FAERS Safety Report 5531740-9 (Version None)
Quarter: 2007Q4

REPORT INFORMATION
  Report Type: 
  Country: None (occurrence: None)
  Receive Date: 20071128
  Receipt Date: 20071128
  Transmission Date: 20080405
  Serious: No
  Sender: FDA-Public Use
  Company Number: None

PATIENT
  Age: 2 Year
  Sex: Female
  Weight: 13.6079 kg

DRUGS (1)
  1. CHILDREN'S ALLERGY ANTIHISTAMINE 12.5 MG IN EACH 5 ML TSP LONG'S WELLN [Suspect]
     Indication: NASAL CONGESTION
     Dates: start: 20071115, end: 20071115

REACTIONS (4)
  - ACCIDENTAL DRUG INTAKE BY CHILD [None]
  - ACCIDENTAL OVERDOSE [None]
  - FAILURE OF CHILD RESISTANT MECHANISM FOR PHARMACEUTICAL PRODUCT [None]
  - PHARMACEUTICAL PRODUCT COMPLAINT [None]
